FAERS Safety Report 4658401-2 (Version None)
Quarter: 2005Q2

REPORT INFORMATION
  Report Type: 
  Country: None (occurrence: None)
  Receive Date: 20050509
  Receipt Date: 20050406
  Transmission Date: 20051028
  Serious: Yes (Other)
  Sender: FDA-Public Use
  Company Number: 2004216353US

PATIENT
  Age: 62 Year
  Sex: Female

DRUGS (4)
  1. PROVERA [Suspect]
     Indication: HORMONE REPLACEMENT THERAPY
     Dosage: 2.5 MG
     Dates: start: 19810101, end: 19960101
  2. CONJUGATED ESTROGENS [Suspect]
     Indication: HORMONE REPLACEMENT THERAPY
     Dosage: 0.625 MG
     Dates: start: 19810101, end: 19960101
  3. PROVERA [Suspect]
     Indication: HORMONE REPLACEMENT THERAPY
     Dosage: 0.625 MG; 2.5MG
     Dates: start: 19960101, end: 20010601
  4. PROVERA [Suspect]
     Indication: HORMONE REPLACEMENT THERAPY
     Dosage: 0.625 MG; 2.5MG
     Dates: start: 19960101, end: 20010601

REACTIONS (1)
  - BREAST CANCER FEMALE [None]
